FAERS Safety Report 4449661-1 (Version None)
Quarter: 2004Q3

REPORT INFORMATION
  Report Type: 
  Country: None (occurrence: None)
  Receive Date: 20040913
  Receipt Date: 20040827
  Transmission Date: 20050211
  Serious: Yes (Other)
  Sender: FDA-Public Use
  Company Number: 200394

PATIENT
  Age: 33 Year
  Sex: Female
  Weight: 73.8 kg

DRUGS (18)
  1. AVONEX [Suspect]
     Indication: MULTIPLE SCLEROSIS
     Dosage: 30 MCG QW IM
     Route: 030
     Dates: start: 20000101, end: 20040625
  2. NATALIZUMAB [Concomitant]
  3. ORTHO-NOVUM [Concomitant]
  4. EXTRA STRENGTH TYLENOL [Concomitant]
  5. ADVIL [Concomitant]
  6. DRAMAMINE [Concomitant]
  7. STOOL SOFTENER [Concomitant]
  8. BACLOFEN [Concomitant]
  9. ASPIRIN [Concomitant]
  10. MULTI-VITAMINS [Concomitant]
  11. REMIFEMIN [Concomitant]
  12. SENNA-GEN [Concomitant]
  13. PROVIGIL [Concomitant]
  14. EFFEXOR XR [Concomitant]
  15. ALPRAZOLAM [Concomitant]
  16. MIDRIN [Concomitant]
  17. SPRINTEC 28 [Concomitant]
  18. ORTHO TRI-CYCLEN [Concomitant]

REACTIONS (23)
  - ABASIA [None]
  - ANTIBODY TEST POSITIVE [None]
  - APPENDICITIS PERFORATED [None]
  - ARTHRALGIA [None]
  - ARTHRITIS [None]
  - BLOOD CREATININE DECREASED [None]
  - BLOOD IMMUNOGLOBULIN G INCREASED [None]
  - BLOOD IMMUNOGLOBULIN M INCREASED [None]
  - COUGH [None]
  - DERMATITIS [None]
  - DISCOMFORT [None]
  - EYE OEDEMA [None]
  - FATIGUE [None]
  - FLUSHING [None]
  - LARYNGITIS [None]
  - LUPUS-LIKE SYNDROME [None]
  - LYMPHOEDEMA [None]
  - MALAISE [None]
  - OEDEMA PERIPHERAL [None]
  - PHARYNGITIS [None]
  - RASH [None]
  - RASH ERYTHEMATOUS [None]
  - SYSTEMIC LUPUS ERYTHEMATOSUS [None]
